FAERS Safety Report 6653793-7 (Version None)
Quarter: 2010Q1

REPORT INFORMATION
  Report Type: 
  Country: None (occurrence: None)
  Receive Date: 20100326
  Receipt Date: 20100322
  Transmission Date: 20100710
  Serious: Yes (Other)
  Sender: FDA-Public Use
  Company Number: A0851376A

PATIENT
  Sex: Male

DRUGS (3)
  1. LAMICTAL CD [Suspect]
     Route: 048
  2. LAMICTAL CD [Suspect]
     Route: 048
  3. NO CONCURRENT MEDICATION [Concomitant]

REACTIONS (3)
  - CONVULSION [None]
  - DYSPHAGIA [None]
  - PRODUCT QUALITY ISSUE [None]
